FAERS Safety Report 24387156 (Version 1)
Quarter: 2024Q4

REPORT INFORMATION
  Report Type: Spontaneous
  Country: US (occurrence: US)
  Receive Date: 20241002
  Receipt Date: 20241002
  Transmission Date: 20250115
  Serious: No
  Sender: QOL
  Company Number: US-QOL Medical, LLC-2162323

PATIENT
  Age: 69 Year
  Sex: Female

DRUGS (6)
  1. SUCRAID [Suspect]
     Active Substance: SACROSIDASE
     Dates: start: 20230512, end: 20230514
  2. ALBUTEROL [Concomitant]
     Active Substance: ALBUTEROL
  3. UNSPECIFIED INGREDIENT [Concomitant]
     Active Substance: UNSPECIFIED INGREDIENT
  4. PROLIA [Concomitant]
     Active Substance: DENOSUMAB
  5. DILTIAZEM [Concomitant]
     Active Substance: DILTIAZEM
  6. LEVOTHYROXINE [Concomitant]
     Active Substance: LEVOTHYROXINE

REACTIONS (3)
  - Throat irritation [Recovered/Resolved]
  - Cough [Recovered/Resolved]
  - Nausea [Recovered/Resolved]

NARRATIVE: CASE EVENT DATE: 20230515
